FAERS Safety Report 5728350-7 (Version None)
Quarter: 2008Q2

REPORT INFORMATION
  Report Type: 
  Country: None (occurrence: None)
  Receive Date: 20080506
  Receipt Date: 20080428
  Transmission Date: 20081010
  Serious: Yes (Other)
  Sender: FDA-Public Use
  Company Number: PHHY2008BR06256

PATIENT
  Age: 17 Year
  Sex: Female

DRUGS (2)
  1. METHERGINE [Suspect]
     Indication: ABDOMINAL PAIN
     Dosage: SINGLE DOSE OF 6 TABLETS
     Route: 048
  2. DIPYRONE [Concomitant]
     Indication: ABDOMINAL PAIN
     Dosage: 1 TABLET
     Route: 048

REACTIONS (6)
  - ABORTION SPONTANEOUS [None]
  - DIZZINESS [None]
  - DRUG EXPOSURE DURING PREGNANCY [None]
  - HAEMORRHAGE [None]
  - HEADACHE [None]
  - INCORRECT DOSE ADMINISTERED [None]
